FAERS Safety Report 11875766 (Version 1)
Quarter: 2015Q4

REPORT INFORMATION
  Report Type: Spontaneous
  Country: JP (occurrence: JP)
  Receive Date: 20151229
  Receipt Date: 20151229
  Transmission Date: 20160305
  Serious: Yes (Other)
  Sender: FDA-Public Use
  Company Number: JP-SA-2015SA218842

PATIENT
  Age: 81 Year
  Sex: Male

DRUGS (4)
  1. LEVOFOLINATE [Suspect]
     Active Substance: LEVOLEUCOVORIN CALCIUM
     Indication: RECTAL CANCER
     Dosage: INJECTION
     Route: 041
  2. ELPLAT [Suspect]
     Active Substance: OXALIPLATIN
     Indication: RECTAL CANCER
     Dosage: INJECTION
     Route: 041
  3. FLUOROURACIL. [Concomitant]
     Active Substance: FLUOROURACIL
     Dosage: BOLUS
  4. FLUOROURACIL. [Concomitant]
     Active Substance: FLUOROURACIL
     Dosage: CONTINUOUS INFUSION (TOTAL OF 6 CYCLES)
     Route: 042

REACTIONS (3)
  - Tumour perforation [Recovering/Resolving]
  - Subcutaneous abscess [Recovering/Resolving]
  - Disseminated intravascular coagulation [Recovering/Resolving]
